FAERS Safety Report 23749243 (Version 1)
Quarter: 2024Q2

REPORT INFORMATION
  Report Type: Spontaneous
  Country: IT (occurrence: IT)
  Receive Date: 20240416
  Receipt Date: 20240416
  Transmission Date: 20240715
  Serious: Yes (Death, Other)
  Sender: FDA-Public Use
  Company Number: IT-SANDOZ-SDZ2024IT039180

PATIENT
  Sex: Male

DRUGS (17)
  1. CYCLOPHOSPHAMIDE [Suspect]
     Active Substance: CYCLOPHOSPHAMIDE
     Indication: Diffuse large B-cell lymphoma
     Dosage: 6 CYCLES
     Route: 065
  2. DOXORUBICIN [Suspect]
     Active Substance: DOXORUBICIN
     Indication: Diffuse large B-cell lymphoma
     Dosage: UNK
     Route: 065
  3. RITUXIMAB [Suspect]
     Active Substance: RITUXIMAB
     Indication: Diffuse large B-cell lymphoma
     Dosage: 2 CYCLES
     Route: 065
  4. VINCRISTINE [Suspect]
     Active Substance: VINCRISTINE
     Indication: Diffuse large B-cell lymphoma
     Dosage: UNK
     Route: 065
  5. AMPHOTERICIN B [Concomitant]
     Active Substance: AMPHOTERICIN B
     Indication: Immunosuppression
     Dosage: UNK
     Route: 065
  6. LEVOCARNITINE [Concomitant]
     Active Substance: LEVOCARNITINE
     Indication: Metabolic disorder
     Dosage: 100 MG/KG
     Route: 065
  7. LEVOCARNITINE [Concomitant]
     Active Substance: LEVOCARNITINE
     Dosage: 100 MG/KG
     Route: 065
  8. LEVOCARNITINE [Concomitant]
     Active Substance: LEVOCARNITINE
     Dosage: 100 MG/KG
     Route: 065
  9. LEVOCARNITINE [Concomitant]
     Active Substance: LEVOCARNITINE
     Dosage: 100 MG/KG
     Route: 065
  10. LINEZOLID [Concomitant]
     Active Substance: LINEZOLID
     Indication: Immunosuppression
     Dosage: UNK
     Route: 065
  11. MEROPENEM [Concomitant]
     Active Substance: MEROPENEM
     Indication: Immunosuppression
     Dosage: UNK
     Route: 065
  12. PROTEIN [Concomitant]
     Active Substance: PROTEIN
     Indication: Metabolic disorder
     Dosage: 30 G
     Route: 065
  13. PROTEIN [Concomitant]
     Active Substance: PROTEIN
     Dosage: 45 G, QD
     Route: 065
  14. PROTEIN [Concomitant]
     Active Substance: PROTEIN
     Dosage: 45 G, QD
     Route: 065
  15. PROTEIN [Concomitant]
     Active Substance: PROTEIN
     Dosage: 45 G, QD
     Route: 065
  16. SODIUM BICARBONATE [Concomitant]
     Active Substance: SODIUM BICARBONATE
     Indication: Product used for unknown indication
     Dosage: 7.5 G/DAY IN THREE DOSES
     Route: 065
  17. VALACYCLOVIR [Concomitant]
     Active Substance: VALACYCLOVIR HYDROCHLORIDE
     Indication: Visual acuity tests abnormal
     Dosage: UNK
     Route: 065

REACTIONS (4)
  - Toxicity to various agents [Fatal]
  - Pancytopenia [Not Recovered/Not Resolved]
  - Renal failure [Not Recovered/Not Resolved]
  - Pyrexia [Not Recovered/Not Resolved]
